FAERS Safety Report 7765355-9 (Version None)
Quarter: 2011Q3

REPORT INFORMATION
  Report Type: 
  Country: None (occurrence: None)
  Receive Date: 20110921
  Receipt Date: 20110913
  Transmission Date: 20111222
  Serious: Yes (Other)
  Sender: FDA-Public Use
  Company Number: CHPA2011US12559

PATIENT
  Age: 78 Year
  Sex: Female

DRUGS (2)
  1. PROZAC [Concomitant]
     Indication: DEPRESSION
     Dosage: UNK
     Route: 048
  2. PREVACID 24 HR [Suspect]
     Indication: DYSPEPSIA
     Dosage: 15 MG, QD
     Route: 048

REACTIONS (4)
  - THERAPEUTIC RESPONSE UNEXPECTED [None]
  - INCORRECT DRUG ADMINISTRATION DURATION [None]
  - OFF LABEL USE [None]
  - DIARRHOEA [None]
